FAERS Safety Report 7903182-X (Version None)
Quarter: 2011Q4

REPORT INFORMATION
  Report Type: 
  Country: None (occurrence: None)
  Receive Date: 20111108
  Receipt Date: 20111108
  Transmission Date: 20120403
  Serious: Yes (Hospitalization)
  Sender: FDA-Public Use
  Company Number: None

PATIENT
  Sex: Female
  Weight: 87.0906 kg

DRUGS (6)
  1. ERLOTINIB HYDROCHLORIDE [Suspect]
     Indication: PANCREATIC CARCINOMA
     Dosage: 150 MGX21 DAYS CYCLE 1 ; CYCLE 2
     Dates: start: 20110927
  2. ERLOTINIB HYDROCHLORIDE [Suspect]
     Indication: PANCREATIC CARCINOMA
     Dosage: 150 MGX21 DAYS CYCLE 1 ; CYCLE 2
     Dates: start: 20111004
  3. ERLOTINIB HYDROCHLORIDE [Suspect]
     Indication: PANCREATIC CARCINOMA
     Dosage: 150 MGX21 DAYS CYCLE 1 ; CYCLE 2
     Dates: start: 20111025
  4. GEMCITABINE [Suspect]
     Indication: PANCREATIC CARCINOMA
     Dosage: 750MG/M2 WKLY X2 BID CYCLE 1 ; CYCLE 2
     Dates: start: 20111004
  5. GEMCITABINE [Suspect]
     Indication: PANCREATIC CARCINOMA
     Dosage: 750MG/M2 WKLY X2 BID CYCLE 1 ; CYCLE 2
     Dates: start: 20110927
  6. GEMCITABINE [Suspect]
     Indication: PANCREATIC CARCINOMA
     Dosage: 750MG/M2 WKLY X2 BID CYCLE 1 ; CYCLE 2
     Dates: start: 20111025

REACTIONS (5)
  - DIARRHOEA [None]
  - CONVULSION [None]
  - UNRESPONSIVE TO STIMULI [None]
  - VOMITING [None]
  - NAUSEA [None]
